FAERS Safety Report 7606454-1 (Version None)
Quarter: 2011Q3

REPORT INFORMATION
  Report Type: 
  Country: None (occurrence: None)
  Receive Date: 20110705
  Receipt Date: 20110623
  Transmission Date: 20111222
  Serious: Yes (Death, Hospitalization)
  Sender: FDA-Public Use
  Company Number: B0728099A

PATIENT
  Age: 19 Year
  Sex: Male

DRUGS (1)
  1. ATOVAQUONE [Suspect]
     Indication: ANTIFUNGAL PROPHYLAXIS

REACTIONS (10)
  - SYNCOPE [None]
  - GENERAL PHYSICAL HEALTH DETERIORATION [None]
  - PYREXIA [None]
  - PERICARDIAL EFFUSION [None]
  - TOXOPLASMOSIS [None]
  - RASH MACULO-PAPULAR [None]
  - ACUTE RESPIRATORY DISTRESS SYNDROME [None]
  - CARDIAC FAILURE [None]
  - WEIGHT DECREASED [None]
  - DRUG INEFFECTIVE [None]
